FAERS Safety Report 10027450 (Version 1)
Quarter: 2014Q1

REPORT INFORMATION
  Report Type: Spontaneous
  Country: US (occurrence: US)
  Receive Date: 20140321
  Receipt Date: 20140321
  Transmission Date: 20141002
  Serious: No
  Sender: FDA-Public Use
  Company Number: US-PFIZER INC-2014082105

PATIENT
  Age: 54 Year
  Sex: Female
  Weight: 102.4 kg

DRUGS (8)
  1. GABAPENTIN [Suspect]
     Indication: NEUROPATHY PERIPHERAL
     Dosage: 300 MG, 3X/DAY
  2. METHOTREXATE [Concomitant]
     Indication: RHEUMATOID ARTHRITIS
     Dosage: 20 MG, WEEKLY
     Route: 048
  3. ALLOPURINOL [Concomitant]
     Indication: GOUT
     Dosage: 300 MG, 1X/DAY
  4. LORTAB [Concomitant]
     Indication: PAIN
     Dosage: 10 MG, 4X/DAY
  5. LOSARTAN [Concomitant]
     Indication: BLOOD PRESSURE
     Dosage: 50 MG, 1X/DAY
  6. TRAZODONE [Concomitant]
     Indication: SLEEP DISORDER
     Dosage: 150 MG, 1X/DAY
  7. ASPIRIN [Concomitant]
     Indication: CARDIAC DISORDER
     Dosage: 81 MG, 1X/DAY
  8. QUETIAPINE FUMARATE [Concomitant]
     Indication: SLEEP DISORDER
     Dosage: 200 MG, 1X/DAY
     Dates: start: 201402

REACTIONS (1)
  - Drug ineffective [Unknown]
